FAERS Safety Report 6357281-7 (Version None)
Quarter: 2009Q3

REPORT INFORMATION
  Report Type: 
  Country: None (occurrence: None)
  Receive Date: 20090916
  Receipt Date: 20090904
  Transmission Date: 20100115
  Serious: Yes (Other)
  Sender: FDA-Public Use
  Company Number: PHEH2009US10499

PATIENT
  Sex: Female

DRUGS (9)
  1. RECLAST [Suspect]
  2. LOESTRIN FE 1/20 [Concomitant]
  3. LAMICTAL ^BURROUGHS WELLCOME^ [Concomitant]
     Dosage: 500 MG, UNK
  4. KEPPRA [Concomitant]
     Dosage: 500 MG, UNK
  5. NEXIUM [Concomitant]
     Dosage: 40 MG, UNK
  6. RUFINAMIDE [Concomitant]
     Dosage: 400 MG, UNK
  7. TRILEPTAL [Concomitant]
     Dosage: 300 MG, UNK
  8. VALIUM [Concomitant]
     Dosage: 2 MG, UNK
  9. BACLOFEN [Concomitant]
     Dosage: 15 MG, UNK

REACTIONS (11)
  - ABDOMINAL DISCOMFORT [None]
  - ABNORMAL BEHAVIOUR [None]
  - CONVULSION [None]
  - CORNEAL ABRASION [None]
  - CRYING [None]
  - HEADACHE [None]
  - INFLUENZA LIKE ILLNESS [None]
  - PAIN [None]
  - POLLAKIURIA [None]
  - PRURITUS [None]
  - SWELLING FACE [None]
